FAERS Safety Report 5113033-7 (Version None)
Quarter: 2006Q3

REPORT INFORMATION
  Report Type: 
  Country: None (occurrence: None)
  Receive Date: 20060921
  Receipt Date: 20060921
  Transmission Date: 20061208
  Serious: Yes (Other)
  Sender: FDA-Public Use
  Company Number: None

PATIENT
  Age: 37 Year
  Sex: Female
  Weight: 61.2356 kg

DRUGS (1)
  1. LEVOFLOXACIN [Suspect]
     Indication: URINARY TRACT INFECTION
     Dosage: 500 MG 1 TABLET EVERY DAY PO
     Route: 048
     Dates: start: 20060616, end: 20060626

REACTIONS (9)
  - ARTHRALGIA [None]
  - CROHN'S DISEASE [None]
  - MALABSORPTION [None]
  - NERVE INJURY [None]
  - PAIN [None]
  - PELVIC PAIN [None]
  - PROCTALGIA [None]
  - TENDONITIS [None]
  - VAGINAL PAIN [None]
